FAERS Safety Report 10556444 (Version 1)
Quarter: 2014Q4

REPORT INFORMATION
  Report Type: Report from Study
  Country: CA (occurrence: CA)
  Receive Date: 20141031
  Receipt Date: 20141031
  Transmission Date: 20150529
  Serious: Yes (Other)
  Sender: FDA-Public Use
  Company Number: CA-AMGEN-CANSL2014084179

PATIENT
  Age: 59 Year
  Sex: Female

DRUGS (1)
  1. NEUPOGEN [Suspect]
     Active Substance: FILGRASTIM
     Indication: NEUTROPENIA
     Dosage: 1ML/300MCG, UNK
     Route: 065
     Dates: start: 20141019

REACTIONS (1)
  - Adverse reaction [Unknown]
